FAERS Safety Report 13019793 (Version 2)
Quarter: 2018Q2

REPORT INFORMATION
  Report Type: Spontaneous
  Country: US (occurrence: US)
  Receive Date: 20161212
  Receipt Date: 20180608
  Transmission Date: 20180711
  Serious: No
  Sender: FDA-Public Use
  Company Number: US-ROCHE-1837186

PATIENT
  Sex: Female

DRUGS (8)
  1. ACTEMRA [Suspect]
     Active Substance: TOCILIZUMAB
     Indication: RHEUMATOID ARTHRITIS
     Dosage: (STRENGTH: 162 MG/0.9 ML)
     Route: 058
     Dates: start: 20151223
  2. ENBREL [Concomitant]
     Active Substance: ETANERCEPT
  3. HUMIRA [Concomitant]
     Active Substance: ADALIMUMAB
  4. PLAQUENIL [Concomitant]
     Active Substance: HYDROXYCHLOROQUINE SULFATE
  5. CIMZIA [Concomitant]
     Active Substance: CERTOLIZUMAB PEGOL
  6. ORENCIA [Concomitant]
     Active Substance: ABATACEPT
  7. METHOTREXATE. [Concomitant]
     Active Substance: METHOTREXATE
  8. SIMPONI [Concomitant]
     Active Substance: GOLIMUMAB

REACTIONS (2)
  - No adverse event [Unknown]
  - Drug ineffective [Unknown]
